FAERS Safety Report 5670833-2 (Version None)
Quarter: 2008Q2

REPORT INFORMATION
  Report Type: 
  Country: None (occurrence: None)
  Receive Date: 20080305
  Receipt Date: 20070911
  Transmission Date: 20081010
  Serious: Yes (Hospitalization)
  Sender: FDA-Public Use
  Company Number: BDI-010085

PATIENT
  Age: 53 Year
  Sex: Female
  Weight: 68.2 kg

DRUGS (3)
  1. ISOVUE-370 [Suspect]
     Indication: AGEUSIA
     Dosage: 65ML ONCE INTRAVENOUS
     Route: 042
     Dates: start: 20070803, end: 20070803
  2. ISOVUE-370 [Suspect]
     Indication: COMPUTERISED TOMOGRAM
     Dosage: 65ML ONCE INTRAVENOUS
     Route: 042
     Dates: start: 20070803, end: 20070803
  3. ALBUTEROL [Concomitant]

REACTIONS (4)
  - FEELING HOT [None]
  - HEART RATE INCREASED [None]
  - NERVOUSNESS [None]
  - SYNCOPE VASOVAGAL [None]
